FAERS Safety Report 12141626 (Version 1)
Quarter: 2016Q1

REPORT INFORMATION
  Report Type: Spontaneous
  Country: RS (occurrence: RS)
  Receive Date: 20160303
  Receipt Date: 20160303
  Transmission Date: 20160526
  Serious: Yes (Other)
  Sender: FDA-Public Use
  Company Number: RS-BAYER-2016-041695

PATIENT
  Sex: Female

DRUGS (3)
  1. YAZ [Suspect]
     Active Substance: DROSPIRENONE\ETHINYL ESTRADIOL
     Indication: MENOMETRORRHAGIA
     Dosage: UNK
     Route: 048
     Dates: start: 2009, end: 2011
  2. JEANINE [Suspect]
     Active Substance: ETHINYL ESTRADIOL
     Indication: OVARIAN DISORDER
  3. JEANINE [Suspect]
     Active Substance: ETHINYL ESTRADIOL
     Indication: MENORRHAGIA
     Dosage: UNK

REACTIONS (3)
  - Off label use [None]
  - Ovarian germ cell teratoma benign [Recovered/Resolved]
  - Off label use [None]

NARRATIVE: CASE EVENT DATE: 2009
